FAERS Safety Report 19284809 (Version 1)
Quarter: 2021Q2

REPORT INFORMATION
  Report Type: Other
  Country: BE (occurrence: BE)
  Receive Date: 20210521
  Receipt Date: 20210521
  Transmission Date: 20210717
  Serious: Yes (Death, Hospitalization, Other)
  Sender: FDA-Public Use
  Company Number: BE-ROCHE-2829503

PATIENT
  Sex: Male

DRUGS (1)
  1. POLIVY [Suspect]
     Active Substance: POLATUZUMAB VEDOTIN-PIIQ
     Indication: PRODUCT USED FOR UNKNOWN INDICATION
     Route: 042

REACTIONS (3)
  - Hypoxia [Unknown]
  - SARS-CoV-2 test positive [Unknown]
  - COVID-19 [Fatal]

NARRATIVE: CASE EVENT DATE: 20210308
